FAERS Safety Report 10612481 (Version 1)
Quarter: 2014Q4

REPORT INFORMATION
  Report Type: Report from Study
  Country: US (occurrence: US)
  Receive Date: 20141127
  Receipt Date: 20141127
  Transmission Date: 20150529
  Serious: Yes (Hospitalization)
  Sender: FDA-Public Use
  Company Number: US-BIOGENIDEC-2014BI125211

PATIENT
  Age: 56 Year
  Sex: Female

DRUGS (1)
  1. AVONEX [Suspect]
     Active Substance: INTERFERON BETA-1A
     Indication: MULTIPLE SCLEROSIS
     Route: 030
     Dates: start: 20030701

REACTIONS (4)
  - Pneumonia [Not Recovered/Not Resolved]
  - Asthenia [Recovered/Resolved with Sequelae]
  - Decreased immune responsiveness [Not Recovered/Not Resolved]
  - Influenza [Recovered/Resolved]
